FAERS Safety Report 6576630-8 (Version None)
Quarter: 2010Q1

REPORT INFORMATION
  Report Type: 
  Country: None (occurrence: None)
  Receive Date: 20100210
  Receipt Date: 20100204
  Transmission Date: 20100710
  Serious: Yes (Congenital Anomaly)
  Sender: FDA-Public Use
  Company Number: US-BRISTOL-MYERS SQUIBB COMPANY-14966055

PATIENT
  Sex: Male
  Weight: 4 kg

DRUGS (3)
  1. REYATAZ [Suspect]
     Dosage: 1DF-1TABS
     Route: 064
  2. RETROVIR [Suspect]
     Route: 064
     Dates: end: 20091210
  3. KALETRA [Suspect]
     Dosage: 4DF-4 TABS
     Route: 064
     Dates: end: 20091013

REACTIONS (1)
  - HAEMANGIOMA [None]
